FAERS Safety Report 19083661 (Version 1)
Quarter: 2021Q2

REPORT INFORMATION
  Report Type: Spontaneous
  Country: US (occurrence: US)
  Receive Date: 20210401
  Receipt Date: 20210401
  Transmission Date: 20210717
  Serious: Yes (Hospitalization, Other)
  Sender: FDA-Public Use
  Company Number: NVSC2021US068946

PATIENT
  Age: 68 Year
  Sex: Male

DRUGS (12)
  1. ELIQUIS [Concomitant]
     Active Substance: APIXABAN
     Indication: PRODUCT USED FOR UNKNOWN INDICATION
     Dosage: 10 MG, BID (FOR 07 DAYS)
     Route: 065
  2. IXAZOMIB [Suspect]
     Active Substance: IXAZOMIB
     Indication: PLASMA CELL MYELOMA
     Dosage: 4 MG (1 IN 7 DAY)
     Route: 048
     Dates: start: 20200924, end: 20201001
  3. REVLIMID [Suspect]
     Active Substance: LENALIDOMIDE
     Indication: PLASMA CELL MYELOMA
     Dosage: 25 MG, QD
     Route: 048
     Dates: start: 20200924, end: 20201001
  4. ASPIRIN. [Concomitant]
     Active Substance: ASPIRIN
     Indication: THROMBOSIS PROPHYLAXIS
     Dosage: UNK
     Route: 048
     Dates: start: 201905, end: 20201001
  5. DEXAMETHASONE. [Suspect]
     Active Substance: DEXAMETHASONE
     Indication: PLASMA CELL MYELOMA
     Dosage: UNK
     Route: 048
     Dates: start: 20200924, end: 20201001
  6. DEXAMETHASONE. [Suspect]
     Active Substance: DEXAMETHASONE
     Dosage: UNK
     Route: 048
     Dates: start: 20201008, end: 20201112
  7. IXAZOMIB [Suspect]
     Active Substance: IXAZOMIB
     Dosage: 4 MG (1 IN 7 DAY)
     Route: 048
     Dates: start: 20201008
  8. ELIQUIS [Concomitant]
     Active Substance: APIXABAN
     Dosage: 05 MG, QD
     Route: 065
  9. REVLIMID [Suspect]
     Active Substance: LENALIDOMIDE
     Dosage: 25 MG (1 IN I DAY)
     Route: 048
     Dates: start: 20201022, end: 20201112
  10. ACYCLOVIR. [Concomitant]
     Active Substance: ACYCLOVIR
     Indication: INFECTION PROPHYLAXIS
     Dosage: 800 MG (2 IN 1 DAY)
     Route: 048
     Dates: start: 2016
  11. HEPARIN [Concomitant]
     Active Substance: HEPARIN SODIUM
     Indication: DEEP VEIN THROMBOSIS
     Dosage: 06 ML (HOURLY )
     Route: 041
     Dates: start: 20201001, end: 20201030
  12. IXAZOMIB [Suspect]
     Active Substance: IXAZOMIB
     Dosage: 4 MG (1 IN 7 DAY)
     Route: 048
     Dates: end: 20201112

REACTIONS (12)
  - Deep vein thrombosis [Recovered/Resolved]
  - Lymphocyte count decreased [Unknown]
  - Activated partial thromboplastin time prolonged [Unknown]
  - Haemoglobin decreased [Unknown]
  - Pulmonary embolism [Recovered/Resolved]
  - C-reactive protein increased [Unknown]
  - Prothrombin time prolonged [Unknown]
  - Platelet count decreased [Unknown]
  - Haematocrit decreased [Unknown]
  - White blood cell count decreased [Unknown]
  - Red blood cell count decreased [Unknown]
  - Basophil count decreased [Unknown]

NARRATIVE: CASE EVENT DATE: 20201001
